FAERS Safety Report 5022279-8 (Version None)
Quarter: 2006Q2

REPORT INFORMATION
  Report Type: 
  Country: None (occurrence: None)
  Receive Date: 20060609
  Receipt Date: 20040916
  Transmission Date: 20061013
  Serious: Yes (Death)
  Sender: FDA-Public Use
  Company Number: HU-GLAXOSMITHKLINE-B0345467A

PATIENT
  Age: 64 Year
  Sex: Female

DRUGS (1)
  1. TOPOTECAN [Suspect]
     Indication: OVARIAN CANCER METASTATIC
     Dosage: 2.25MG PER DAY
     Route: 042
     Dates: start: 20040811, end: 20040815

REACTIONS (5)
  - ASCITES [None]
  - CARDIAC FAILURE [None]
  - DISEASE PROGRESSION [None]
  - METASTASES TO PERINEUM [None]
  - RESPIRATORY FAILURE [None]
